FAERS Safety Report 23084978 (Version 1)
Quarter: 2023Q4

REPORT INFORMATION
  Report Type: Spontaneous
  Country: US (occurrence: None)
  Receive Date: 20231019
  Receipt Date: 20231019
  Transmission Date: 20240110
  Serious: Yes (Hospitalization)
  Sender: FDA-Public Use
  Company Number: None

PATIENT
  Age: 74 Year
  Sex: Male

DRUGS (1)
  1. DAPTOMYCIN [Suspect]
     Active Substance: DAPTOMYCIN

REACTIONS (8)
  - Dyspnoea [None]
  - Toxicity to various agents [None]
  - Blood creatine phosphokinase increased [None]
  - Eosinophilic pneumonia [None]
  - Fatigue [None]
  - Decreased appetite [None]
  - Malaise [None]
  - Pyrexia [None]

NARRATIVE: CASE EVENT DATE: 20221107
